FAERS Safety Report 17747505 (Version 4)
Quarter: 2022Q2

REPORT INFORMATION
  Report Type: Report from Study
  Country: SE (occurrence: SE)
  Receive Date: 20200505
  Receipt Date: 20220419
  Transmission Date: 20220721
  Serious: Yes (Life-Threatening)
  Sender: FDA-Public Use
  Company Number: SE-SA-2019SA302810

PATIENT
  Age: 9 Year
  Sex: Male
  Weight: 36 kg

DRUGS (27)
  1. ISATUXIMAB [Suspect]
     Active Substance: ISATUXIMAB
     Indication: T-cell type acute leukaemia
     Dosage: 20 MG/KG, QW  (INTERRUPTION OF AT 10.50)
     Route: 042
     Dates: start: 20191030, end: 20191030
  2. ISATUXIMAB [Suspect]
     Active Substance: ISATUXIMAB
     Dosage: 20 MG/KG, QW  (FROM 10:20 TO 10:42)
     Route: 042
     Dates: start: 20191030, end: 20191030
  3. DEXAMETHASONE [Suspect]
     Active Substance: DEXAMETHASONE
     Indication: T-cell type acute leukaemia
     Dosage: 10 MG/M2, QD, ACTUAL DOSE: 48 MG
     Route: 048
     Dates: start: 20191027, end: 20191029
  4. MITOXANTRONE [Suspect]
     Active Substance: MITOXANTRONE HYDROCHLORIDE
     Indication: T-cell type acute leukaemia
     Dosage: 10 MG/M2
     Route: 042
  5. DOXORUBICIN [Suspect]
     Active Substance: DOXORUBICIN
     Indication: T-cell type acute leukaemia
     Dosage: 25 MG/M2
     Route: 042
  6. FLUDARABINE [Suspect]
     Active Substance: FLUDARABINE PHOSPHATE
     Indication: T-cell type acute leukaemia
     Dosage: UNK
     Route: 065
  7. CYTARABINE [Suspect]
     Active Substance: CYTARABINE
     Indication: T-cell type acute leukaemia
     Dosage: 2 MG/M2
     Route: 042
  8. VINCRISTINE SULFATE [Suspect]
     Active Substance: VINCRISTINE SULFATE
     Indication: T-cell type acute leukaemia
     Dosage: 1.5 MG/M2
     Route: 042
  9. METHOTREXATE [Suspect]
     Active Substance: METHOTREXATE
     Indication: T-cell type acute leukaemia
     Dosage: 1000 MG/M2
     Route: 042
  10. ASPARAGINASE [Suspect]
     Active Substance: ASPARAGINASE
     Indication: T-cell type acute leukaemia
     Dosage: 1000 IU/M2
     Route: 030
  11. CLINDAMYCIN [Concomitant]
     Active Substance: CLINDAMYCIN
     Dosage: UNK
     Route: 042
     Dates: start: 20191018, end: 20191026
  12. CEFTAZIDIME [Concomitant]
     Active Substance: CEFTAZIDIME
     Dosage: UNK
     Route: 042
     Dates: start: 20191016, end: 20191026
  13. CLONIDINE [Concomitant]
     Active Substance: CLONIDINE
     Indication: Prophylaxis
     Dosage: UNK
     Route: 048
     Dates: start: 20191009, end: 20191028
  14. FLUCONAZOLE [Concomitant]
     Active Substance: FLUCONAZOLE
     Indication: Prophylaxis
     Dosage: UNK
     Route: 048
     Dates: start: 20190528
  15. SULFAMETHOXAZOLE [Concomitant]
     Active Substance: SULFAMETHOXAZOLE
     Indication: Prophylaxis
     Dosage: UNK
     Route: 048
     Dates: start: 20190907, end: 20191027
  16. EPINEPHRINE [Concomitant]
     Active Substance: EPINEPHRINE
     Dosage: 0.3 MG, 1X, AT 10.55
     Route: 042
     Dates: start: 20191030, end: 20191030
  17. HYDROCORTISONE SODIUM SUCCINATE [Concomitant]
     Active Substance: HYDROCORTISONE SODIUM SUCCINATE
     Dosage: 100 MG, 1X,  AT 11:00
     Route: 042
     Dates: start: 20191030, end: 20191030
  18. ACETAMINOPHEN [Concomitant]
     Active Substance: ACETAMINOPHEN
     Indication: Prophylaxis
     Dosage: 528 MG, 1X, BETWEEN 9.40 AND 10.00 AM
     Route: 048
     Dates: start: 20191030, end: 20191030
  19. CLEMASTINE FUMARATE [Concomitant]
     Active Substance: CLEMASTINE FUMARATE
     Indication: Prophylaxis
     Dosage: 1.5 MG, QD, BETWEEN 9.40 AND 10.00 AM
     Route: 042
     Dates: start: 20191030, end: 20191030
  20. DEXAMETHASONE [Concomitant]
     Active Substance: DEXAMETHASONE
     Indication: Prophylaxis
     Dosage: 12 MG, QD, BETWEEN 9.40 AND 10.00 AM
     Route: 048
     Dates: start: 20191030, end: 20191030
  21. VINCRISTINE [Concomitant]
     Active Substance: VINCRISTINE
  22. PEG/L-ASPARAGINASE [Concomitant]
     Active Substance: PEGASPARGASE
  23. CYCLOPHOSPHAMIDE [Concomitant]
     Active Substance: CYCLOPHOSPHAMIDE
  24. ETOPOSIDE [Concomitant]
     Active Substance: ETOPOSIDE
  25. IDARUBICIN [Concomitant]
     Active Substance: IDARUBICIN
  26. DAUNORUBICIN [Concomitant]
     Active Substance: DAUNORUBICIN
  27. DAUNOXOME [DAUNORUBICIN HYDROCHLORIDE] [Concomitant]

REACTIONS (1)
  - Infusion related reaction [Recovered/Resolved]

NARRATIVE: CASE EVENT DATE: 20191030
